FAERS Safety Report 15902120 (Version 1)
Quarter: 2019Q1

REPORT INFORMATION
  Report Type: Spontaneous
  Country: US (occurrence: US)
  Receive Date: 20190201
  Receipt Date: 20190201
  Transmission Date: 20190417
  Serious: Yes (Other)
  Sender: FDA-Public Use
  Company Number: US-PFIZER INC-2019028074

PATIENT
  Sex: Male

DRUGS (1)
  1. ROBITUSSIN DRY COUGH FORTE [Suspect]
     Active Substance: DEXTROMETHORPHAN HYDROBROMIDE
     Dosage: 250 MG, UNK

REACTIONS (1)
  - Drug abuse [Unknown]
